FAERS Safety Report 8132592-3 (Version None)
Quarter: 2012Q1

REPORT INFORMATION
  Report Type: 
  Country: None (occurrence: None)
  Receive Date: 20120213
  Receipt Date: 20120202
  Transmission Date: 20120608
  Serious: Yes (Hospitalization)
  Sender: FDA-Public Use
  Company Number: US-NOVOPROD-344139

PATIENT
  Age: 61 Year
  Sex: Female
  Weight: 72.562 kg

DRUGS (4)
  1. VICTOZA [Suspect]
     Indication: TYPE 2 DIABETES MELLITUS
     Dosage: 0.6 MG, QD
     Route: 058
     Dates: start: 20110901, end: 20120131
  2. NYQUIL [Concomitant]
     Indication: CHILLS
  3. NYQUIL [Concomitant]
     Indication: PYREXIA
     Dosage: UNKNOWN
     Route: 048
  4. AUGMENTIN '125' [Concomitant]
     Indication: SINUSITIS
     Dosage: UNKNOWN
     Route: 048

REACTIONS (1)
  - CHOLANGITIS [None]
